FAERS Safety Report 23441201 (Version 2)
Quarter: 2024Q1

REPORT INFORMATION
  Report Type: Report from Study
  Country: AR (occurrence: AR)
  Receive Date: 20240125
  Receipt Date: 20240221
  Transmission Date: 20240410
  Serious: Yes (Hospitalization)
  Sender: FDA-Public Use
  Company Number: AR-Merck Healthcare KGaA-2024003044

PATIENT
  Age: 10 Year
  Sex: Female

DRUGS (1)
  1. SAIZEN [Suspect]
     Active Substance: SOMATROPIN
     Indication: Chronic kidney disease
     Route: 058
     Dates: start: 20221226

REACTIONS (7)
  - Dehydration [Recovered/Resolved]
  - Bacterial diarrhoea [Recovered/Resolved]
  - Escherichia test positive [Recovered/Resolved]
  - Unevaluable event [Recovered/Resolved]
  - Injection site pain [Not Recovered/Not Resolved]
  - Fear of injection [Unknown]
  - Product dose omission issue [Unknown]

NARRATIVE: CASE EVENT DATE: 20231001
